FAERS Safety Report 26200154 (Version 2)
Quarter: 2025Q4

REPORT INFORMATION
  Report Type: Report from Study
  Country: US (occurrence: None)
  Receive Date: 20251225
  Receipt Date: 20251230
  Transmission Date: 20260118
  Serious: No
  Sender: UCB
  Company Number: US-UCBSA-2025005163

PATIENT

DRUGS (5)
  1. FENFLURAMINE [Suspect]
     Active Substance: FENFLURAMINE
     Indication: Focal dyscognitive seizures
     Dosage: 2 MILLILITER, 2X/DAY (BID)FOR 7 DAYS
  2. FENFLURAMINE [Suspect]
     Active Substance: FENFLURAMINE
     Indication: Product used for unknown indication
     Dosage: 4 MILLILITER, 2X/DAY (BID) FOR 7 DAYS
  3. FENFLURAMINE [Suspect]
     Active Substance: FENFLURAMINE
     Indication: Off label use
     Dosage: 6 MILLILITER, 2X/DAY (BID) FOR 7 DAYS
  4. FENFLURAMINE [Suspect]
     Active Substance: FENFLURAMINE
     Dosage: UNK
  5. FENFLURAMINE [Suspect]
     Active Substance: FENFLURAMINE
     Dosage: 26.4 MG/DAY

REACTIONS (1)
  - No adverse event [Unknown]
